FAERS Safety Report 4303958-4 (Version None)
Quarter: 2004Q1

REPORT INFORMATION
  Report Type: 
  Country: None (occurrence: None)
  Receive Date: 20040225
  Receipt Date: 20040217
  Transmission Date: 20041129
  Serious: Yes (Hospitalization)
  Sender: FDA-Public Use
  Company Number: FR-ROCHE-359084

PATIENT
  Age: 41 Year
  Sex: Female
  Weight: 56 kg

DRUGS (2)
  1. ROACCUTANE [Suspect]
     Indication: ACNE
     Route: 048
     Dates: start: 20031115
  2. ROACCUTANE [Suspect]
     Route: 048
     Dates: start: 20031017, end: 20031118

REACTIONS (3)
  - DEAFNESS [None]
  - EAR DISCOMFORT [None]
  - TINNITUS [None]
